FAERS Safety Report 8990940 (Version 1)
Quarter: 2012Q4

REPORT INFORMATION
  Report Type: Spontaneous
  Country: US (occurrence: None)
  Receive Date: 20121227
  Receipt Date: 20121227
  Transmission Date: 20130627
  Serious: Yes (Other)
  Sender: FDA-Public Use
  Company Number: None

PATIENT
  Age: 49 Year
  Sex: Male

DRUGS (1)
  1. EGRIFTA [Suspect]
     Indication: AUTOIMMUNE DISORDER
     Dosage: 2mg QD S-Q
     Route: 058
     Dates: start: 20121220

REACTIONS (4)
  - Pain [None]
  - Muscle swelling [None]
  - Dyspnoea [None]
  - Nausea [None]
